FAERS Safety Report 15538887 (Version 1)
Quarter: 2018Q4

REPORT INFORMATION
  Report Type: Spontaneous
  Country: US (occurrence: US)
  Receive Date: 20181022
  Receipt Date: 20181022
  Transmission Date: 20190205
  Serious: No
  Sender: FDA-Public Use
  Company Number: US-SA-2018SA174410

PATIENT
  Sex: Female

DRUGS (4)
  1. ICY HOT ADVANCED RELIEF (MENTHOL) [Suspect]
     Active Substance: MENTHOL
  2. ASPERCREME NOS [Suspect]
     Active Substance: MENTHOL\TROLAMINE SALICYLATE
     Dosage: UNK
  3. MYOFLEX [TROLAMINE SALICYLATE] [Concomitant]
  4. JOINTFLEX [Suspect]
     Active Substance: CAMPHOR (SYNTHETIC)

REACTIONS (1)
  - Burning sensation [Unknown]
